FAERS Safety Report 5772128-5 (Version None)
Quarter: 2008Q2

REPORT INFORMATION
  Report Type: 
  Country: None (occurrence: None)
  Receive Date: 20080613
  Receipt Date: 20080519
  Transmission Date: 20081010
  Serious: Yes (Disabling, Other)
  Sender: FDA-Public Use
  Company Number: -MERCK-0806HUN00004

PATIENT
  Age: 18 Year
  Sex: Female

DRUGS (13)
  1. CRIXIVAN [Suspect]
     Indication: ANTIRETROVIRAL THERAPY
     Route: 048
  2. ZIDOVUDINE [Suspect]
     Indication: ANTIRETROVIRAL THERAPY
     Route: 065
  3. STAVUDINE [Suspect]
     Indication: ANTIRETROVIRAL THERAPY
     Route: 065
     Dates: start: 20020801, end: 20021101
  4. DIDANOSINE [Suspect]
     Indication: ANTIRETROVIRAL THERAPY
     Route: 065
     Dates: start: 20020801, end: 20021101
  5. RITONAVIR [Suspect]
     Indication: ANTIRETROVIRAL THERAPY
     Route: 065
  6. ABACAVIR SULFATE [Suspect]
     Indication: ANTIRETROVIRAL THERAPY
     Route: 065
  7. EPIVIR [Suspect]
     Indication: ANTIRETROVIRAL THERAPY
     Route: 065
  8. ATAZANAVIR [Suspect]
     Indication: ANTIRETROVIRAL THERAPY
     Route: 065
  9. ABACAVIR SULFATE AND LAMIVUDINE AND ZIDOVUDINE [Suspect]
     Indication: ANTIRETROVIRAL THERAPY
     Route: 065
  10. NELFINAVIR MESYLATE [Suspect]
     Indication: ANTIRETROVIRAL THERAPY
     Route: 065
     Dates: start: 20020601, end: 20020801
  11. COMBIVIR [Suspect]
     Indication: ANTIRETROVIRAL THERAPY
     Route: 065
     Dates: start: 20020601, end: 20020801
  12. [THERAPY UNSPECIFIED] [Suspect]
     Indication: TUBERCULOSIS
     Route: 065
     Dates: start: 20060101, end: 20070101
  13. CORTICOSTEROIDS (UNSPECIFIED) [Suspect]
     Indication: INTRACRANIAL PRESSURE INCREASED
     Route: 065

REACTIONS (8)
  - ANAEMIA [None]
  - DYSLIPIDAEMIA [None]
  - HYPERCHOLESTEROLAEMIA [None]
  - HYPERTRIGLYCERIDAEMIA [None]
  - NEUROPATHY PERIPHERAL [None]
  - OSTEONECROSIS [None]
  - OSTEOPENIA [None]
  - PANCREATITIS ACUTE [None]
